FAERS Safety Report 6522505-X (Version None)
Quarter: 2009Q4

REPORT INFORMATION
  Report Type: 
  Country: None (occurrence: None)
  Receive Date: 20091229
  Receipt Date: 20091229
  Transmission Date: 20100525
  Serious: Yes (Death)
  Sender: FDA-Public Use
  Company Number: None

PATIENT
  Age: 95 Year
  Sex: Female
  Weight: 45.8133 kg

DRUGS (1)
  1. HALOPERIDOL [Suspect]
     Indication: INSOMNIA
     Dates: start: 20090821, end: 20090823

REACTIONS (1)
  - CARDIAC ARREST [None]
